FAERS Safety Report 6885454-3 (Version None)
Quarter: 2010Q3

REPORT INFORMATION
  Report Type: 
  Country: None (occurrence: None)
  Receive Date: 20100729
  Receipt Date: 20080602
  Transmission Date: 20110219
  Serious: Yes (Hospitalization, Disabling, Other)
  Sender: FDA-Public Use
  Company Number: US-PFIZER INC-2008046243

PATIENT
  Sex: Male
  Weight: 113.4 kg

DRUGS (1)
  1. CELEBREX [Suspect]
     Indication: BACK DISORDER
     Dates: start: 19991101

REACTIONS (2)
  - CEREBROVASCULAR ACCIDENT [None]
  - MYOCARDIAL INFARCTION [None]
